FAERS Safety Report 13936822 (Version 7)
Quarter: 2018Q2

REPORT INFORMATION
  Report Type: Spontaneous
  Country: US (occurrence: US)
  Receive Date: 20170905
  Receipt Date: 20180424
  Transmission Date: 20180711
  Serious: Yes (Hospitalization, Other)
  Sender: FDA-Public Use
  Company Number: US-PFIZER INC-2017375821

PATIENT
  Age: 81 Year
  Sex: Female
  Weight: 58.6 kg

DRUGS (4)
  1. LETROZOLE. [Concomitant]
     Active Substance: LETROZOLE
     Indication: BREAST CANCER
     Dosage: 2.5 MG, DAILY
     Route: 048
     Dates: start: 201706, end: 201711
  2. LETROZOLE. [Concomitant]
     Active Substance: LETROZOLE
     Indication: HORMONE SUPPRESSION THERAPY
  3. IBRANCE [Suspect]
     Active Substance: PALBOCICLIB
     Indication: BREAST CANCER METASTATIC
     Dosage: 125 MG, CYCLIC (ONCE A DAY FOR 21 DAYS)
     Route: 048
     Dates: start: 20170718, end: 20170808
  4. IBRANCE [Suspect]
     Active Substance: PALBOCICLIB
     Dosage: 100 MG, CYCLIC
     Route: 048
     Dates: start: 20170821, end: 20170921

REACTIONS (39)
  - Cardiovascular disorder [Unknown]
  - Eosinophil count increased [Unknown]
  - Bacteraemia [Unknown]
  - Confusional state [Unknown]
  - Diarrhoea [Unknown]
  - Tooth disorder [Unknown]
  - Vomiting projectile [Unknown]
  - Abdominal pain [Unknown]
  - Sepsis [Unknown]
  - Vomiting [Unknown]
  - Liver disorder [Unknown]
  - Weight decreased [Unknown]
  - Hyperpyrexia [Unknown]
  - Bleeding time prolonged [Unknown]
  - Toothache [Unknown]
  - Chills [Unknown]
  - Aspartate aminotransferase increased [Unknown]
  - Hepatic enzyme increased [Not Recovered/Not Resolved]
  - Decreased appetite [Recovered/Resolved]
  - Dehydration [Unknown]
  - Hepatitis [Unknown]
  - Asthenia [Recovered/Resolved]
  - Blood immunoglobulin G decreased [Unknown]
  - Leukopenia [Unknown]
  - Blood immunoglobulin A decreased [Unknown]
  - Hypersensitivity [Recovered/Resolved]
  - Alanine aminotransferase increased [Unknown]
  - Sinus tachycardia [Unknown]
  - Pruritus [Unknown]
  - Transaminases increased [Unknown]
  - Vitamin B12 increased [Unknown]
  - Pyrexia [Recovered/Resolved]
  - Eosinophilia [Recovered/Resolved]
  - Neutropenia [Recovered/Resolved]
  - Nausea [Unknown]
  - Oliguria [Unknown]
  - Hyperhidrosis [Not Recovered/Not Resolved]
  - Night sweats [Not Recovered/Not Resolved]
  - Hepatic failure [Unknown]

NARRATIVE: CASE EVENT DATE: 2017
